FAERS Safety Report 20009242 (Version 1)
Quarter: 2021Q4

REPORT INFORMATION
  Report Type: Spontaneous
  Country: US (occurrence: US)
  Receive Date: 20211029
  Receipt Date: 20211029
  Transmission Date: 20220303
  Serious: No
  Sender: FDA-Public Use
  Company Number: US-SA-SAC20211027001499

PATIENT
  Sex: Female

DRUGS (1)
  1. XYZAL ALLERGY 24HR [Suspect]
     Active Substance: LEVOCETIRIZINE DIHYDROCHLORIDE
     Indication: Hypersensitivity
     Dosage: UNK
     Route: 065

REACTIONS (7)
  - Nightmare [Unknown]
  - Feeling abnormal [Unknown]
  - Hangover [Unknown]
  - Somnolence [Unknown]
  - Headache [Unknown]
  - Somnolence [Unknown]
  - Drug ineffective [Unknown]
